FAERS Safety Report 6912493-6 (Version None)
Quarter: 2010Q3

REPORT INFORMATION
  Report Type: 
  Country: None (occurrence: None)
  Receive Date: 20100806
  Receipt Date: 20080711
  Transmission Date: 20110219
  Serious: No
  Sender: FDA-Public Use
  Company Number: US-PFIZER INC-2008058071

PATIENT
  Sex: Female
  Weight: 53.07 kg

DRUGS (4)
  1. VFEND [Suspect]
     Indication: ASPERGILLOSIS
     Route: 048
     Dates: start: 20070201
  2. PREDNISONE [Concomitant]
  3. PROGRAF [Concomitant]
  4. RAPAMUNE [Concomitant]

REACTIONS (1)
  - OEDEMA PERIPHERAL [None]
